FAERS Safety Report 14033135 (Version 5)
Quarter: 2018Q1

REPORT INFORMATION
  Report Type: Spontaneous
  Country: US (occurrence: US)
  Receive Date: 20171003
  Receipt Date: 20180105
  Transmission Date: 20180508
  Serious: No
  Sender: FDA-Public Use
  Company Number: US-PFIZER INC-2017422164

PATIENT
  Age: 55 Year
  Sex: Female
  Weight: 54 kg

DRUGS (2)
  1. IBRANCE [Suspect]
     Active Substance: PALBOCICLIB
     Indication: BREAST CANCER METASTATIC
     Dosage: 125 MG, CYCLIC (DAYS 1-21 Q28DAYS]
     Route: 048
     Dates: start: 20170912
  2. IBRANCE [Suspect]
     Active Substance: PALBOCICLIB
     Dosage: 125 MG, CYCLIC[D1 - D21 Q28D]
     Route: 048
     Dates: start: 20170918

REACTIONS (14)
  - Neck pain [Unknown]
  - Hypogeusia [Unknown]
  - Paraesthesia [Unknown]
  - Hypoaesthesia [Unknown]
  - Headache [Unknown]
  - Contusion [Unknown]
  - Dysgeusia [Unknown]
  - Nasopharyngitis [Unknown]
  - Arthralgia [Not Recovered/Not Resolved]
  - Decreased appetite [Unknown]
  - Alopecia [Unknown]
  - Influenza [Unknown]
  - Euphoric mood [Unknown]
  - Asthenia [Not Recovered/Not Resolved]

NARRATIVE: CASE EVENT DATE: 2017
